FAERS Safety Report 8602595-0 (Version None)
Quarter: 2012Q3

REPORT INFORMATION
  Report Type: 
  Country: None (occurrence: None)
  Receive Date: 20120817
  Receipt Date: 20120810
  Transmission Date: 20120928
  Serious: Yes (Other)
  Sender: FDA-Public Use
  Company Number: US-ASTRAZENECA-2011SE41513

PATIENT
  Age: 21228 Day
  Sex: Female

DRUGS (61)
  1. NEXIUM [Suspect]
     Route: 048
     Dates: start: 20070526
  2. PREDNISONE TAB [Concomitant]
     Dates: start: 20060313
  3. VICODIN/NORCO [Concomitant]
     Dosage: 10 MG-650 MG
     Dates: start: 20060203
  4. VICODIN/NORCO [Concomitant]
     Dosage: 7.5-325 MG TAKE ONE TABLET EVERY SIX HOURS
     Dates: start: 20070531
  5. OMACOR [Concomitant]
     Dates: start: 20060223
  6. CELEBREX [Concomitant]
     Dates: start: 20021107
  7. CELEXA [Concomitant]
     Dates: start: 20021107
  8. STELAZINE [Concomitant]
     Dates: start: 20021107
  9. NEXIUM [Suspect]
     Route: 048
     Dates: start: 20021107
  10. RISPERDAL [Concomitant]
     Dates: start: 20060308
  11. AMITRIPTYLINE HCL [Concomitant]
     Dates: start: 20040909
  12. AMITRIPTYLINE HCL [Concomitant]
     Dates: start: 20060308
  13. CORGARD [Concomitant]
     Dates: start: 20110912
  14. FIORICET [Concomitant]
     Dosage: 325-40-50
     Dates: start: 20060220
  15. ROBAXIN [Concomitant]
     Dates: start: 20070531
  16. KLONOPIN [Concomitant]
     Dates: start: 20110912
  17. CELEBREX [Concomitant]
     Dates: start: 20060201
  18. SUMATRIPTAN [Concomitant]
     Indication: HEADACHE
     Dates: start: 20060101
  19. NEXIUM [Suspect]
     Indication: GASTROOESOPHAGEAL REFLUX DISEASE
     Route: 048
     Dates: start: 19950101, end: 20100101
  20. CEPHALEXIN [Concomitant]
     Dates: start: 20060315
  21. CORGARD [Concomitant]
     Dates: start: 20060223
  22. FIORICET [Concomitant]
     Dosage: 50-325-40 1 TABLET AS NEEDED EVERY FOUR HOURS
     Dates: start: 20110912
  23. ROBAXIN [Concomitant]
     Dates: start: 20060216
  24. LYRICA [Concomitant]
     Dates: start: 20070618
  25. LYRICA [Concomitant]
     Dates: start: 20110912
  26. CELEXA [Concomitant]
     Dates: start: 20041009
  27. ELAVIL [Concomitant]
     Dates: start: 20021107
  28. ELAVIL [Concomitant]
     Dates: start: 20110912
  29. NEXIUM [Suspect]
     Dosage: 40 MG CAPSULE AS DIRECTED
     Route: 048
     Dates: start: 20110912
  30. PRILOSEC [Suspect]
     Indication: GASTROOESOPHAGEAL REFLUX DISEASE
     Route: 065
     Dates: start: 19950101, end: 20100101
  31. VICODIN/NORCO [Concomitant]
     Dosage: 5MG-500MG
     Dates: start: 20060220
  32. TEQUIN [Concomitant]
     Dates: start: 20060227
  33. CORGARD [Concomitant]
     Dates: start: 20021107
  34. FIORICET [Concomitant]
     Dosage: TAKE ONE TABLET 4 TIMES DAILY AS NEEDED
     Dates: start: 20060911
  35. BIAXIN XL [Concomitant]
     Dates: start: 20060220
  36. ROBAXIN [Concomitant]
     Dosage: 750 MG EVERY 4-6 HOURS PRN
     Route: 048
     Dates: start: 20070905
  37. BUT/ASA/CAFF [Concomitant]
     Dosage: TAKE ONE CAPSULE EVERY SIX HOURS AS NEEDED
     Dates: start: 20070521
  38. SUMATRIPTAN [Concomitant]
     Dosage: 50 MG TABLET TAKE ONE TABLET AT ONSET OF HEADACHE AND REPEAT IN TWO HOURS IF NEEDED
     Dates: start: 20070526
  39. SKELAXIN [Concomitant]
     Dates: start: 20110912
  40. ARMODAFINIL [Concomitant]
     Dates: start: 20060208
  41. RISPERDAL [Concomitant]
     Dates: start: 20040909
  42. NEXIUM [Suspect]
     Route: 048
     Dates: start: 20060207
  43. CEPHALEXIN [Concomitant]
     Dates: start: 20070529
  44. PREDNISONE TAB [Concomitant]
     Dosage: WITH FOOD OR MILK
     Dates: start: 20061002
  45. VICODIN/NORCO [Concomitant]
     Dosage: 7.5-325 MG AS NEEDED FOR PAIN EVERY SIX HOURS
     Dates: start: 20110912
  46. LOMOTIL [Concomitant]
     Dosage: 2.5-0.25 MG
     Dates: start: 20060210
  47. KLONOPIN [Concomitant]
     Dates: start: 20060208
  48. CELEBREX [Concomitant]
     Dosage: WITH FOOD OR MILK
     Dates: start: 20060920
  49. CLARITIN-D [Concomitant]
     Dosage: ONE TABLET PER DAY PRN
     Route: 048
     Dates: start: 20070905
  50. NEXIUM [Suspect]
     Route: 048
     Dates: start: 20061106
  51. PREDNISONE TAB [Concomitant]
     Dosage: 5-10 MG PRN
     Dates: start: 20060919
  52. ZYRTEC [Concomitant]
     Dates: start: 20060220
  53. METHYLPREDNISOLONE [Concomitant]
     Dates: start: 20060216
  54. CELEXA [Concomitant]
     Dates: start: 20110912
  55. BENADRYL [Concomitant]
     Dosage: 25 MG TWO TABLET PER DAY PRN
     Route: 048
     Dates: start: 20070905
  56. LIBRIUM [Concomitant]
     Dosage: 10 MG PRN
     Dates: start: 20060919
  57. VICODIN/NORCO [Concomitant]
     Indication: PAIN
     Dates: start: 20021107
  58. CORGARD [Concomitant]
     Dates: start: 20060920
  59. FIORICET [Concomitant]
     Indication: TENSION HEADACHE
     Dates: start: 20021107
  60. ROBAXIN [Concomitant]
     Dosage: 450 MG TABLET 1 TABLET EVERY FOUR HRS PRN
     Dates: start: 20110912
  61. KLONOPIN [Concomitant]
     Dates: start: 20070613

REACTIONS (6)
  - OSTEOPENIA [None]
  - MENTAL DISORDER [None]
  - PAIN [None]
  - FOOT FRACTURE [None]
  - PAIN IN EXTREMITY [None]
  - OSTEOPOROSIS [None]
